FAERS Safety Report 18967814 (Version 1)
Quarter: 2021Q1

REPORT INFORMATION
  Report Type: Report from Study
  Country: AU (occurrence: AU)
  Receive Date: 20210304
  Receipt Date: 20210304
  Transmission Date: 20210420
  Serious: Yes (Other)
  Sender: FDA-Public Use
  Company Number: NVSC2021AU038956

PATIENT
  Sex: Male

DRUGS (1)
  1. BEOVU [Suspect]
     Active Substance: BROLUCIZUMAB-DBLL
     Indication: PRODUCT USED FOR UNKNOWN INDICATION
     Dosage: UNK UNK, 6 WEEKLY INTERVALS
     Route: 065

REACTIONS (4)
  - Keratic precipitates [Unknown]
  - Off label use [Unknown]
  - Eye inflammation [Unknown]
  - Vision blurred [Unknown]
